FAERS Safety Report 14599507 (Version 1)
Quarter: 2018Q1

REPORT INFORMATION
  Report Type: Spontaneous
  Country: IL (occurrence: IL)
  Receive Date: 20180305
  Receipt Date: 20180305
  Transmission Date: 20180509
  Serious: Yes (Other)
  Sender: FDA-Public Use
  Company Number: IL-PFIZER INC-2018086475

PATIENT
  Age: 57 Year
  Sex: Female

DRUGS (2)
  1. OXALIPLATIN. [Suspect]
     Active Substance: OXALIPLATIN
     Dosage: 170 MG, UNK
     Route: 042
     Dates: start: 201704
  2. VECTIBIX [Suspect]
     Active Substance: PANITUMUMAB
     Dosage: 680 MG, UNK
     Route: 042

REACTIONS (1)
  - Choking sensation [Unknown]

NARRATIVE: CASE EVENT DATE: 20180207
